FAERS Safety Report 14023840 (Version 1)
Quarter: 2017Q3

REPORT INFORMATION
  Report Type: Spontaneous
  Country: US (occurrence: US)
  Receive Date: 20170929
  Receipt Date: 20170929
  Transmission Date: 20171128
  Serious: No
  Sender: FDA-Public Use
  Company Number: US-JUBILANT CADISTA PHARMACEUTICALS-2017JUB00280

PATIENT
  Age: 41 Year
  Sex: Female

DRUGS (2)
  1. PREDNISONE. [Suspect]
     Active Substance: PREDNISONE
     Dosage: 20 MG, 2X/DAY
     Route: 048
     Dates: start: 201707
  2. PREDNISONE. [Suspect]
     Active Substance: PREDNISONE
     Dosage: 20 MG, 3X/DAY
     Route: 048
     Dates: start: 201706, end: 201707

REACTIONS (2)
  - Vein disorder [Unknown]
  - Head discomfort [Unknown]

NARRATIVE: CASE EVENT DATE: 201707
